FAERS Safety Report 16251538 (Version 1)
Quarter: 2019Q2

REPORT INFORMATION
  Report Type: Spontaneous
  Country: BR (occurrence: BR)
  Receive Date: 20190429
  Receipt Date: 20190429
  Transmission Date: 20190711
  Serious: Yes (Hospitalization, Other)
  Sender: FDA-Public Use
  Company Number: BR-PFIZER INC-2019170610

PATIENT
  Age: 65 Year
  Sex: Female

DRUGS (1)
  1. GEODON [Suspect]
     Active Substance: ZIPRASIDONE HYDROCHLORIDE\ZIPRASIDONE MESYLATE
     Indication: BIPOLAR DISORDER
     Dosage: UNK
     Dates: start: 2010

REACTIONS (6)
  - Depression [Unknown]
  - Mental impairment [Unknown]
  - Mood swings [Unknown]
  - Repetitive speech [Unknown]
  - Neck deformity [Unknown]
  - Loss of personal independence in daily activities [Unknown]
